FAERS Safety Report 7674806-X (Version None)
Quarter: 2011Q3

REPORT INFORMATION
  Report Type: 
  Country: None (occurrence: None)
  Receive Date: 20110810
  Receipt Date: 20110805
  Transmission Date: 20111222
  Serious: Yes (Hospitalization)
  Sender: FDA-Public Use
  Company Number: DE-GLAXOSMITHKLINE-D0072312A

PATIENT
  Age: 60 Year
  Sex: Female

DRUGS (2)
  1. OTHER MEDICATIONS [Concomitant]
     Route: 065
  2. ROPINIROLE [Suspect]
     Indication: PARKINSON'S DISEASE
     Route: 048

REACTIONS (3)
  - LUNG DISORDER [None]
  - RESPIRATORY GAS EXCHANGE DISORDER [None]
  - CYANOSIS [None]
